FAERS Safety Report 13497608 (Version 4)
Quarter: 2018Q3

REPORT INFORMATION
  Report Type: Spontaneous
  Country: US (occurrence: US)
  Receive Date: 20170428
  Receipt Date: 20180904
  Transmission Date: 20181010
  Serious: No
  Sender: FDA-Public Use
  Company Number: US-PFIZER INC-2017090285

PATIENT
  Age: 13 Year
  Sex: Male
  Weight: 48 kg

DRUGS (3)
  1. GENOTROPIN [Suspect]
     Active Substance: SOMATROPIN
     Indication: HYPOPITUITARISM
     Dosage: 1.6 MG, DAILY
     Dates: start: 201703
  2. GENOTROPIN [Suspect]
     Active Substance: SOMATROPIN
     Indication: GROWTH HORMONE DEFICIENCY
     Dosage: UNK, 1X/DAY [1.9 M ONCE A DAY]
     Dates: start: 201703, end: 201706
  3. GENOTROPIN [Suspect]
     Active Substance: SOMATROPIN
     Dosage: UNK, 1X/DAY [2.4 ONCE A DAY]
     Dates: start: 201706

REACTIONS (3)
  - Weight increased [Unknown]
  - Drug dose omission [Not Recovered/Not Resolved]
  - Intercepted drug prescribing error [Unknown]

NARRATIVE: CASE EVENT DATE: 20170322
